FAERS Safety Report 4363689-1 (Version None)
Quarter: 2004Q2

REPORT INFORMATION
  Report Type: 
  Country: None (occurrence: None)
  Receive Date: 20040521
  Receipt Date: 20040521
  Transmission Date: 20050107
  Serious: No
  Sender: FDA-Public Use
  Company Number: None

PATIENT
  Age: 35 Year
  Sex: Female
  Weight: 45.3597 kg

DRUGS (1)
  1. DEPO-PROVERA [Suspect]

REACTIONS (11)
  - ACNE [None]
  - ALOPECIA [None]
  - ANGER [None]
  - CRYING [None]
  - DEPRESSION [None]
  - DYSMENORRHOEA [None]
  - INSOMNIA [None]
  - MALAISE [None]
  - MYALGIA [None]
  - RASH [None]
  - SUICIDAL IDEATION [None]
